FAERS Safety Report 22538935 (Version 1)
Quarter: 2023Q2

REPORT INFORMATION
  Report Type: Spontaneous
  Country: FR (occurrence: FR)
  Receive Date: 20230609
  Receipt Date: 20230609
  Transmission Date: 20230721
  Serious: Yes (Other)
  Sender: FDA-Public Use
  Company Number: None

PATIENT
  Age: 36 Year
  Sex: Male
  Weight: 89 kg

DRUGS (5)
  1. LOVENOX [Suspect]
     Active Substance: ENOXAPARIN SODIUM
     Dosage: 4000 IU, QD
     Route: 058
     Dates: start: 20230428, end: 20230505
  2. YERVOY [Suspect]
     Active Substance: IPILIMUMAB
     Indication: Malignant melanoma
     Dosage: 250 MG, QCY
     Route: 042
     Dates: start: 20230330, end: 20230330
  3. OPDIVO [Suspect]
     Active Substance: NIVOLUMAB
     Indication: Malignant melanoma
     Dosage: 92 MG, QCY
     Route: 042
     Dates: start: 20230330
  4. AMITRIPTYLINE HYDROCHLORIDE [Concomitant]
     Active Substance: AMITRIPTYLINE HYDROCHLORIDE
     Indication: Pain
     Dosage: 25 MG, QD
     Route: 048
     Dates: start: 20230429
  5. NIMOTOP [Concomitant]
     Active Substance: NIMODIPINE
     Indication: Reversible cerebral vasoconstriction syndrome
     Dosage: 90 MG, QD
     Route: 048
     Dates: start: 20230422

REACTIONS (1)
  - Hepatic cytolysis [Recovered/Resolved]

NARRATIVE: CASE EVENT DATE: 20230101
